FAERS Safety Report 8550198-9 (Version None)
Quarter: 2012Q3

REPORT INFORMATION
  Report Type: 
  Country: None (occurrence: None)
  Receive Date: 20120730
  Receipt Date: 20120720
  Transmission Date: 20120928
  Serious: Yes (Other)
  Sender: FDA-Public Use
  Company Number: JP-VERTEX PHARMACEUTICALS INC.-AE-2012-010166

PATIENT
  Age: 66 Year
  Sex: Male

DRUGS (21)
  1. PROHEPARUM [Concomitant]
     Route: 048
  2. DIOVAN [Concomitant]
     Route: 048
  3. NAPROXEN [Concomitant]
     Route: 048
     Dates: start: 20120612
  4. VOLTAREN [Concomitant]
     Route: 054
     Dates: start: 20120612
  5. LOXONIN [Concomitant]
     Route: 048
     Dates: start: 20120615
  6. ACTOS [Concomitant]
     Route: 048
     Dates: start: 20120626
  7. LENDORMIN D [Concomitant]
     Route: 048
     Dates: start: 20120621
  8. ESTAZOLAM [Concomitant]
     Route: 048
     Dates: start: 20120624
  9. DEPAS [Concomitant]
     Route: 048
     Dates: start: 20120627
  10. TELAVIC (TELAPREVIR) [Suspect]
     Indication: HEPATITIS C
     Route: 048
     Dates: start: 20120613, end: 20120703
  11. ALDACTONE [Concomitant]
     Route: 048
  12. JANUVIA [Concomitant]
     Route: 048
  13. MUCOSTA [Concomitant]
     Route: 048
     Dates: start: 20120612
  14. DOGMATYL [Concomitant]
     Route: 048
     Dates: start: 20120625
  15. TELAVIC (TELAPREVIR) [Suspect]
     Route: 048
     Dates: start: 20120704
  16. URSO 250 [Concomitant]
     Route: 048
     Dates: start: 20120625
  17. PEG-INTRON [Concomitant]
     Indication: HEPATITIS C
     Route: 058
     Dates: start: 20120613
  18. REBETOL [Concomitant]
     Indication: HEPATITIS C
     Route: 048
     Dates: start: 20120613, end: 20120710
  19. REBETOL [Concomitant]
     Route: 048
     Dates: start: 20120711
  20. MOTILIUM [Concomitant]
     Route: 048
     Dates: start: 20120615
  21. LANSOPRAZOLE [Concomitant]
     Route: 048
     Dates: start: 20120626

REACTIONS (4)
  - BLOOD UREA INCREASED [None]
  - MALAISE [None]
  - DECREASED APPETITE [None]
  - BLOOD CREATININE INCREASED [None]
